FAERS Safety Report 9054020 (Version 1)
Quarter: 2013Q1

REPORT INFORMATION
  Report Type: Spontaneous
  Country: GB (occurrence: GB)
  Receive Date: 20130208
  Receipt Date: 20130208
  Transmission Date: 20140127
  Serious: Yes (Other)
  Sender: FDA-Public Use
  Company Number: GB-PFIZER INC-2013052600

PATIENT
  Age: 33 Year
  Sex: Female

DRUGS (1)
  1. RAMIPRIL [Suspect]
     Indication: HYPERTENSION
     Dosage: 2.5 MG, UNK
     Route: 048
     Dates: start: 20120903, end: 20120906

REACTIONS (4)
  - Disorientation [Unknown]
  - Affect lability [Unknown]
  - Feeling drunk [Unknown]
  - Nausea [Unknown]
